FAERS Safety Report 18391893 (Version 1)
Quarter: 2020Q4

REPORT INFORMATION
  Report Type: Spontaneous
  Country: FR (occurrence: FR)
  Receive Date: 20201016
  Receipt Date: 20201016
  Transmission Date: 20210114
  Serious: Yes (Hospitalization)
  Sender: FDA-Public Use
  Company Number: FR-SAMSUNG BIOEPIS-SB-2020-31571

PATIENT
  Age: 31 Year
  Sex: Male
  Weight: 77.5 kg

DRUGS (4)
  1. METHOTREXATE. [Interacting]
     Active Substance: METHOTREXATE
     Indication: RETINAL VASCULITIS
     Route: 048
     Dates: start: 20200702, end: 20200725
  2. CORTANCYL [Interacting]
     Active Substance: PREDNISONE
     Indication: RETINAL VASCULITIS
     Route: 048
     Dates: start: 202001
  3. ADALIMUMAB [Suspect]
     Active Substance: ADALIMUMAB
     Indication: RETINAL VASCULITIS
     Route: 058
     Dates: start: 202003, end: 20200725
  4. SPECIAFOLDINE [Concomitant]
     Active Substance: FOLIC ACID
     Indication: VITAMIN SUPPLEMENTATION
     Route: 048
     Dates: start: 202007, end: 20200725

REACTIONS (3)
  - Disseminated tuberculosis [Recovering/Resolving]
  - Drug interaction [Recovering/Resolving]
  - Product use in unapproved indication [Unknown]

NARRATIVE: CASE EVENT DATE: 202007
